FAERS Safety Report 6762584-8 (Version None)
Quarter: 2010Q2

REPORT INFORMATION
  Report Type: 
  Country: None (occurrence: None)
  Receive Date: 20100609
  Receipt Date: 20100531
  Transmission Date: 20101027
  Serious: Yes (Hospitalization, Disabling, Other)
  Sender: FDA-Public Use
  Company Number: FR-PFIZER INC-2010059728

PATIENT
  Age: 58 Year
  Sex: Female

DRUGS (2)
  1. TAHOR [Suspect]
     Dosage: 10 MG, UNK
     Dates: end: 20100507
  2. TEGRETOL [Concomitant]
     Dosage: UNK

REACTIONS (7)
  - AMYOTROPHY [None]
  - ANTINUCLEAR ANTIBODY POSITIVE [None]
  - JOINT RANGE OF MOTION DECREASED [None]
  - MUSCULAR WEAKNESS [None]
  - MYALGIA [None]
  - PAIN IN EXTREMITY [None]
  - SENSORY DISTURBANCE [None]
